FAERS Safety Report 5318923-8 (Version None)
Quarter: 2007Q1

REPORT INFORMATION
  Report Type: 
  Country: None (occurrence: None)
  Receive Date: 20070202
  Receipt Date: 20061110
  Transmission Date: 20070707
  Serious: No
  Sender: FDA-Public Use
  Company Number: 258515

PATIENT
  Age: 57 Year
  Sex: Female
  Weight: 86.6 kg

DRUGS (2)
  1. NOVOLOG [Suspect]
     Indication: DIABETES MELLITUS
     Dosage: SLIDING SCALE, SUBCUTANEOUS
     Route: 058
  2. NOVOLIN N [Suspect]
     Indication: DIABETES MELLITUS
     Dosage: 106 LU, QD; SUBCUTANEOUS
     Route: 058

REACTIONS (2)
  - BLOOD GLUCOSE DECREASED [None]
  - WRONG DRUG ADMINISTERED [None]
